FAERS Safety Report 18208460 (Version 1)
Quarter: 2020Q3

REPORT INFORMATION
  Report Type: Spontaneous
  Country: US (occurrence: US)
  Receive Date: 20200828
  Receipt Date: 20200828
  Transmission Date: 20201103
  Serious: Yes (Other)
  Sender: FDA-Public Use
  Company Number: US-PFIZER INC-2020332199

PATIENT
  Sex: Female
  Weight: 58.97 kg

DRUGS (1)
  1. LEVOTHYROXINE SODIUM. [Suspect]
     Active Substance: LEVOTHYROXINE SODIUM
     Indication: THYROID DISORDER
     Dosage: 104 MCG /DAY (ON TWO DAYS SHE TAKES 100 MCG, THEN TUESDAY 112 MCG AND THEN ROTATES THE CYCLE)

REACTIONS (3)
  - Blood thyroid stimulating hormone abnormal [Unknown]
  - Breast cancer [Recovered/Resolved]
  - Tri-iodothyronine decreased [Unknown]

NARRATIVE: CASE EVENT DATE: 200710
